FAERS Safety Report 14720767 (Version 3)
Quarter: 2018Q4

REPORT INFORMATION
  Report Type: Spontaneous
  Country: BR (occurrence: BR)
  Receive Date: 20180405
  Receipt Date: 20181105
  Transmission Date: 20190204
  Serious: Yes (Other)
  Sender: FDA-Public Use
  Company Number: BR-REGENERON PHARMACEUTICALS, INC.-2018-20140

PATIENT

DRUGS (3)
  1. CHLORHEXIDINE [Concomitant]
     Active Substance: CHLORHEXIDINE
     Indication: PRODUCT USED FOR UNKNOWN INDICATION
  2. EYLEA [Suspect]
     Active Substance: AFLIBERCEPT
     Indication: DIABETIC RETINAL OEDEMA
     Dosage: DOSE, FREQUENCY, TREATED EYE NOT PROVIDED. TOTAL OF 4 EYLEA INJECTIONS RECEIVED BEFORE EVENT.
     Dates: start: 201803
  3. PREDNISON [Concomitant]
     Active Substance: PREDNISONE
     Indication: PRODUCT USED FOR UNKNOWN INDICATION
     Dosage: 60 MG, UNK

REACTIONS (6)
  - Anterior chamber disorder [Recovered/Resolved with Sequelae]
  - Vitritis [Recovered/Resolved with Sequelae]
  - Multiple use of single-use product [Unknown]
  - Blindness [Recovering/Resolving]
  - Non-infectious endophthalmitis [Recovered/Resolved with Sequelae]
  - Visual impairment [Recovered/Resolved with Sequelae]

NARRATIVE: CASE EVENT DATE: 201803
